FAERS Safety Report 5070349-0 (Version None)
Quarter: 2006Q3

REPORT INFORMATION
  Report Type: 
  Country: None (occurrence: None)
  Receive Date: 20060731
  Receipt Date: 20060720
  Transmission Date: 20061208
  Serious: Yes (Hospitalization, Other)
  Sender: FDA-Public Use
  Company Number: CHNY2006NZ02105

PATIENT
  Sex: Male

DRUGS (1)
  1. HABITROL [Suspect]
     Dosage: SEE IMAGE
     Route: 062
     Dates: start: 20060710, end: 20060711

REACTIONS (12)
  - BLOOD COUNT ABNORMAL [None]
  - DIARRHOEA [None]
  - DIZZINESS [None]
  - DRUG TOXICITY [None]
  - FEELING ABNORMAL [None]
  - HAEMORRHAGE [None]
  - HEADACHE [None]
  - HEART RATE INCREASED [None]
  - NAUSEA [None]
  - THIRST [None]
  - VISUAL DISTURBANCE [None]
  - YELLOW SKIN [None]
